FAERS Safety Report 21976430 (Version 6)
Quarter: 2023Q4

REPORT INFORMATION
  Report Type: Report from Study
  Country: JP (occurrence: JP)
  Receive Date: 20230210
  Receipt Date: 20231109
  Transmission Date: 20240110
  Serious: Yes (Other)
  Sender: FDA-Public Use
  Company Number: JP-LUNDBECK-DKLU3057699

PATIENT
  Age: 52 Year
  Sex: Female
  Weight: 44.8 kg

DRUGS (16)
  1. EPTINEZUMAB [Suspect]
     Active Substance: EPTINEZUMAB
     Indication: Migraine
     Route: 041
     Dates: start: 20220817, end: 20220817
  2. EPTINEZUMAB [Suspect]
     Active Substance: EPTINEZUMAB
     Route: 041
     Dates: start: 20221109, end: 20221109
  3. EPTINEZUMAB [Suspect]
     Active Substance: EPTINEZUMAB
     Route: 041
     Dates: start: 20230201, end: 20230201
  4. RIZATRIPTAN OD [Concomitant]
     Indication: Migraine
     Dosage: PRN
     Route: 048
     Dates: start: 20210827
  5. MAGNESIUM OXIDE [Concomitant]
     Active Substance: MAGNESIUM OXIDE
     Indication: Constipation
     Route: 048
     Dates: start: 2002
  6. FLUTICASONE PROPIONATE\FORMOTEROL FUMARATE [Concomitant]
     Active Substance: FLUTICASONE PROPIONATE\FORMOTEROL FUMARATE
     Indication: Asthma
     Dosage: PRN; FLUTICASONE PROPIONATE 50 MICRO GRAM, FORMOTEROL FUMARATE HYDRATE 5 MICRO GRAM
     Route: 055
     Dates: start: 2012
  7. LOXOPROFEN SODIUM DIHYDRATE [Concomitant]
     Active Substance: LOXOPROFEN SODIUM DIHYDRATE
     Indication: Back pain
     Dosage: PRN
     Route: 062
     Dates: start: 20210401
  8. QUETIAPINE [Concomitant]
     Active Substance: QUETIAPINE
     Indication: Insomnia
     Route: 048
     Dates: start: 20221029, end: 20221113
  9. QUETIAPINE [Concomitant]
     Active Substance: QUETIAPINE
     Route: 048
     Dates: start: 20221126, end: 20221127
  10. QUETIAPINE [Concomitant]
     Active Substance: QUETIAPINE
     Route: 048
     Dates: start: 20221228, end: 20230127
  11. QUETIAPINE [Concomitant]
     Active Substance: QUETIAPINE
     Route: 048
     Dates: start: 20230128
  12. LOXOPROFEN SODIUM [Concomitant]
     Active Substance: LOXOPROFEN SODIUM
     Indication: Abdominal pain
     Dosage: ONCE
     Route: 048
     Dates: start: 20221109, end: 20221109
  13. MOSAPRIDE CITRATE DIHYDRATE [Concomitant]
     Active Substance: MOSAPRIDE CITRATE DIHYDRATE
     Indication: Abdominal pain
     Dosage: ONCE
     Route: 048
     Dates: start: 20221109, end: 20221109
  14. REYVOW [Concomitant]
     Active Substance: LASMIDITAN
     Indication: Migraine
     Dosage: AS NEEDED
     Route: 048
     Dates: start: 20221203
  15. BROTIZOLAM [Concomitant]
     Active Substance: BROTIZOLAM
     Indication: Insomnia
     Dosage: PRN
     Route: 048
     Dates: start: 20220709
  16. COVID-19 Vaccine phizer Intramuscular Injection [Concomitant]
     Indication: COVID-19 prophylaxis
     Dosage: ONCE
     Route: 030
     Dates: start: 20221228, end: 20221228

REACTIONS (1)
  - Presyncope [Recovered/Resolved]

NARRATIVE: CASE EVENT DATE: 20230201
